FAERS Safety Report 24559316 (Version 1)
Quarter: 2024Q4

REPORT INFORMATION
  Report Type: Spontaneous
  Country: BR (occurrence: BR)
  Receive Date: 20241029
  Receipt Date: 20241029
  Transmission Date: 20250114
  Serious: Yes (Other)
  Sender: CHEPLAPHARM
  Company Number: BR-CHEPLA-2024013607

PATIENT
  Age: 69 Year
  Sex: Male
  Weight: 75 kg

DRUGS (5)
  1. CLONAZEPAM [Suspect]
     Active Substance: CLONAZEPAM
     Indication: Sleep disorder
     Dosage: MAH REF 115240011 / FORMULATION TABLET 0.5 MG
     Dates: start: 2022, end: 202408
  2. CLONAZEPAM [Suspect]
     Active Substance: CLONAZEPAM
     Indication: Sleep disorder
     Dosage: MAH REF 115240011 / FORMULATION ORAL SOLUTION / 5 DROP(S) X 1 PER 24 HOURS ?5 DROPS PER NIGHT, O...
     Route: 048
     Dates: start: 202408
  3. GLIFAGE [Concomitant]
     Active Substance: METFORMIN HYDROCHLORIDE
     Indication: Diabetes mellitus
     Dosage: 4 TABLETS A DAY, ONGOING?DAILY DOSE: 4 DOSAGE FORM
     Route: 048
     Dates: start: 2021
  4. BENSERAZIDE\LEVODOPA [Concomitant]
     Active Substance: BENSERAZIDE\LEVODOPA
     Indication: Parkinson^s disease
     Dosage: 4 TABLETS A DAY, ONGOING?DAILY DOSE: 4 DOSAGE FORM
     Dates: start: 2019
  5. ESCITALOPRAM OXALATE [Concomitant]
     Active Substance: ESCITALOPRAM OXALATE
     Indication: Depression
     Dosage: 1 TABLET A DAY, ONGOING?DAILY DOSE: 1 DOSAGE FORM
     Dates: start: 2023

REACTIONS (2)
  - Prostate cancer [Recovering/Resolving]
  - Product use in unapproved indication [Not Recovered/Not Resolved]

NARRATIVE: CASE EVENT DATE: 20220101
